FAERS Safety Report 9278629 (Version 2)
Quarter: 2013Q2

REPORT INFORMATION
  Report Type: Spontaneous
  Country: US (occurrence: US)
  Receive Date: 20130508
  Receipt Date: 20130513
  Transmission Date: 20140414
  Serious: No
  Sender: FDA-Public Use
  Company Number: US-PFIZER INC-2013138989

PATIENT
  Age: 40 Year
  Sex: Male
  Weight: 95.69 kg

DRUGS (3)
  1. VIAGRA [Suspect]
     Indication: ERECTILE DYSFUNCTION
     Dosage: 50 MG, AS NEEDED
     Route: 048
     Dates: start: 201209
  2. VIAGRA [Suspect]
     Dosage: 50 MG, AS NEEDED
     Route: 048
     Dates: start: 2005, end: 201305
  3. IBUPROFEN [Concomitant]
     Dosage: UNK, AS NEEDED

REACTIONS (2)
  - Headache [Unknown]
  - Drug ineffective [Unknown]
